FAERS Safety Report 24254875 (Version 1)
Quarter: 2024Q3

REPORT INFORMATION
  Report Type: Spontaneous
  Country: US (occurrence: None)
  Receive Date: 20240826
  Receipt Date: 20240826
  Transmission Date: 20241017
  Serious: Yes (Other)
  Sender: Public
  Company Number: None

PATIENT
  Age: 63 Year
  Sex: Female
  Weight: 65.25 kg

DRUGS (18)
  1. TRELEGY ELLIPTA [Suspect]
     Active Substance: FLUTICASONE FUROATE\UMECLIDINIUM BROMIDE\VILANTEROL TRIFENATATE
     Indication: Asthma
     Dosage: OTHER STRENGTH : MCG;?OTHER QUANTITY : 1 PUFF(S)?FREQUENCY : DAILY?
     Route: 055
     Dates: start: 20240803, end: 20240821
  2. TRELEGY ELLIPTA [Suspect]
     Active Substance: FLUTICASONE FUROATE\UMECLIDINIUM BROMIDE\VILANTEROL TRIFENATATE
     Indication: Chronic obstructive pulmonary disease
  3. PROVIGIL [Concomitant]
     Active Substance: MODAFINIL
  4. EFFEXOR [Concomitant]
  5. CRESTOR [Concomitant]
  6. Lasix [Concomitant]
  7. Protonix [Concomitant]
  8. Klor Kon [Concomitant]
  9. Singular [Concomitant]
  10. B12 injections [Concomitant]
  11. BENEFIBER [Concomitant]
     Active Substance: STARCH, WHEAT
  12. MAGNESIUM OXIDE [Concomitant]
  13. Vitamin C [Concomitant]
  14. VITAMIN D3 [Concomitant]
     Active Substance: CHOLECALCIFEROL
  15. IRON [Concomitant]
  16. BIOTIN [Concomitant]
  17. Aspirin 88 [Concomitant]
  18. DEVICE [Concomitant]
     Active Substance: DEVICE

REACTIONS (2)
  - Dysphonia [None]
  - Dysphonia [None]
